FAERS Safety Report 6286266-4 (Version None)
Quarter: 2009Q3

REPORT INFORMATION
  Report Type: 
  Country: None (occurrence: None)
  Receive Date: 20090728
  Receipt Date: 20090727
  Transmission Date: 20100115
  Serious: Yes (Hospitalization, Other)
  Sender: FDA-Public Use
  Company Number: GB-PFIZER INC-2009214260

PATIENT
  Age: 61 Year

DRUGS (3)
  1. ARTHROTEC [Suspect]
     Indication: ARTHRALGIA
     Dosage: 1 DF, 2X/DAY
     Route: 048
     Dates: start: 20070906, end: 20090418
  2. ARTHROTEC [Suspect]
     Indication: OSTEOARTHRITIS
  3. PREMARIN [Concomitant]
     Indication: HORMONE REPLACEMENT THERAPY
     Dosage: 1.25 MG, 1X/DAY
     Route: 048
     Dates: start: 19950929

REACTIONS (9)
  - DIARRHOEA [None]
  - DYSPNOEA [None]
  - FACE INJURY [None]
  - FALL [None]
  - HEAD INJURY [None]
  - LIP SWELLING [None]
  - PRURITUS [None]
  - SKIN LACERATION [None]
  - TOOTH LOSS [None]
